FAERS Safety Report 8794861 (Version 1)
Quarter: 2012Q4

REPORT INFORMATION
  Report Type: 
  Country: IL (occurrence: IL)
  Receive Date: 20120917
  Receipt Date: 20120917
  Transmission Date: 20130627
  Serious: Yes (Other)
  Sender: FDA-Public Use
  Company Number: IL-ROCHE-1123732

PATIENT

DRUGS (1)
  1. AVASTIN [Suspect]
     Indication: MACULAR OEDEMA
     Route: 050

REACTIONS (5)
  - Corneal erosion [Unknown]
  - Conjunctival haemorrhage [Unknown]
  - Vision blurred [Unknown]
  - Pain [Unknown]
  - Visual acuity reduced [Unknown]
